FAERS Safety Report 6997991-1 (Version None)
Quarter: 2010Q3

REPORT INFORMATION
  Report Type: 
  Country: None (occurrence: None)
  Receive Date: 20100920
  Receipt Date: 20100331
  Transmission Date: 20110219
  Serious: Yes (Other)
  Sender: FDA-Public Use
  Company Number: US-ASTRAZENECA-2006UW21348

PATIENT
  Sex: Female

DRUGS (13)
  1. SEROQUEL [Suspect]
     Route: 048
     Dates: start: 20010411
  2. SEROQUEL [Suspect]
     Dosage: 300 MG THREE TABLETS Q.H.S
     Route: 048
     Dates: start: 20081020
  3. SEROQUEL [Suspect]
     Route: 048
     Dates: start: 20090427
  4. PROZAC [Concomitant]
     Dosage: 20-40MG DURING THE DAY
     Dates: start: 20010411
  5. TRAZODONE HCL [Concomitant]
     Dosage: 50MG-100MG Q.H.S
  6. DILANTIN [Concomitant]
  7. PHENOBARBITAL [Concomitant]
  8. VISTARIL [Concomitant]
     Indication: ANXIETY
  9. ABILIFY [Concomitant]
  10. COGENTIN [Concomitant]
  11. SINEQUAN [Concomitant]
     Dosage: 100 MG TWO AT NIGHT
  12. KLONOPIN [Concomitant]
  13. INVEGA [Concomitant]

REACTIONS (2)
  - DIABETES MELLITUS [None]
  - PANCREATITIS [None]
